FAERS Safety Report 4502980-2 (Version None)
Quarter: 2004Q4

REPORT INFORMATION
  Report Type: 
  Country: None (occurrence: None)
  Receive Date: 20041112
  Receipt Date: 20041103
  Transmission Date: 20050328
  Serious: Yes (Death, Life-Threatening)
  Sender: FDA-Public Use
  Company Number: 04H-163-0260159-00

PATIENT
  Age: 60 Year
  Sex: Female
  Weight: 74.8435 kg

DRUGS (4)
  1. MORPHINE  SULFATE INJECTION (MORPHINE SULFATE) (MORPHINE SULFATE) [Suspect]
     Dosage: SEE IMAGE
     Route: 042
     Dates: start: 20040416, end: 20040416
  2. MORPHINE  SULFATE INJECTION (MORPHINE SULFATE) (MORPHINE SULFATE) [Suspect]
     Dosage: SEE IMAGE
     Route: 042
     Dates: start: 20040416, end: 20040416
  3. MORPHINE  SULFATE INJECTION (MORPHINE SULFATE) (MORPHINE SULFATE) [Suspect]
     Dosage: SEE IMAGE
     Route: 042
     Dates: start: 20040416, end: 20040416
  4. MORPHINE  SULFATE INJECTION (MORPHINE SULFATE) (MORPHINE SULFATE) [Suspect]
     Dosage: SEE IMAGE
     Route: 042
     Dates: start: 20040417, end: 20040417

REACTIONS (6)
  - BRADYCARDIA [None]
  - COMA [None]
  - FALL [None]
  - MEDICATION ERROR [None]
  - NO THERAPEUTIC RESPONSE [None]
  - OVERDOSE [None]
